FAERS Safety Report 9255506 (Version 1)
Quarter: 2013Q2

REPORT INFORMATION
  Report Type: Spontaneous
  Country: BR (occurrence: None)
  Receive Date: 20130418
  Receipt Date: 20130418
  Transmission Date: 20140414
  Serious: Yes (Hospitalization)
  Sender: FDA-Public Use
  Company Number: 2013-001102

PATIENT
  Age: 84 Year
  Sex: Female
  Weight: 56 kg

DRUGS (6)
  1. ACTONEL [Suspect]
     Indication: OSTEOPOROSIS
     Route: 048
     Dates: start: 2012, end: 2013
  2. COLECALCIFEROL (COLECALCIFEROL) [Concomitant]
  3. COLTRAX (THIOCOLCHICOSIDE) [Concomitant]
  4. ARTROLIVE (CHONDROITIN SULFATE, GLUCOSAMINE SULFATE) [Concomitant]
  5. OTHER THERAPEUTIC PRODUCTS [Concomitant]
  6. SIMVASTATIN (SIMVASTATIN) [Concomitant]

REACTIONS (6)
  - Biliary tract disorder [None]
  - Abdominal pain upper [None]
  - Nausea [None]
  - Eating disorder [None]
  - Weight decreased [None]
  - Inappropriate schedule of drug administration [None]
